FAERS Safety Report 4536688-4 (Version None)
Quarter: 2004Q4

REPORT INFORMATION
  Report Type: 
  Country: None (occurrence: None)
  Receive Date: 20041220
  Receipt Date: 20041207
  Transmission Date: 20050328
  Serious: Yes (Other)
  Sender: FDA-Public Use
  Company Number: 2004110169

PATIENT
  Sex: Male
  Weight: 58 kg

DRUGS (3)
  1. XALATAN [Suspect]
     Indication: GLAUCOMA
     Dosage: ONE DROP (DAILY AT NIGHT), OPHTHALMIC
     Route: 047
     Dates: start: 19960101
  2. DORZOLAMIDE HYDROCHLORIDE    (DORZOLAMIDE HYDROCHLORIDE) [Suspect]
     Indication: GLAUCOMA
     Dosage: ONE DROP (EVERY DAY AT NIGHT), OPHTHALMIC
     Route: 047
     Dates: start: 19960101
  3. HOMEOPATHIC PREPARATION     (HOMEOPATHIC PREPARATION) [Concomitant]

REACTIONS (4)
  - CONSTIPATION [None]
  - GASTROINTESTINAL MOTILITY DISORDER [None]
  - MEDICATION ERROR [None]
  - SENSORY DISTURBANCE [None]
